FAERS Safety Report 20530923 (Version 2)
Quarter: 2022Q3

REPORT INFORMATION
  Report Type: Spontaneous
  Country: CA (occurrence: CA)
  Receive Date: 20220301
  Receipt Date: 20220727
  Transmission Date: 20221027
  Serious: Yes (Other)
  Sender: FDA-Public Use
  Company Number: CA-SAMSUNG BIOEPIS-SB-2022-04641

PATIENT
  Age: 54 Year
  Sex: Male
  Weight: 75 kg

DRUGS (1)
  1. INFLIXIMAB [Suspect]
     Active Substance: INFLIXIMAB
     Indication: Ankylosing spondylitis
     Route: 042

REACTIONS (4)
  - Eye pain [Not Recovered/Not Resolved]
  - Uveitis [Not Recovered/Not Resolved]
  - Visual impairment [Not Recovered/Not Resolved]
  - Inappropriate schedule of product administration [Not Recovered/Not Resolved]
